FAERS Safety Report 7324259-6 (Version None)
Quarter: 2011Q1

REPORT INFORMATION
  Report Type: 
  Country: None (occurrence: None)
  Receive Date: 20110202
  Receipt Date: 20110104
  Transmission Date: 20110831
  Serious: No
  Sender: FDA-Public Use
  Company Number: 2011-00011

PATIENT
  Age: 79 Year
  Sex: Male
  Weight: 72.6 kg

DRUGS (1)
  1. RAPAFLO [Suspect]
     Indication: URINARY RETENTION
     Dosage: 8 MG, DAILY, ORAL
     Route: 048
     Dates: start: 20101212

REACTIONS (1)
  - PAIN IN EXTREMITY [None]
